FAERS Safety Report 21890473 (Version 1)
Quarter: 2023Q1

REPORT INFORMATION
  Report Type: Spontaneous
  Country: US (occurrence: None)
  Receive Date: 20230119
  Receipt Date: 20230119
  Transmission Date: 20230418
  Serious: Yes (Other)
  Sender: FDA-Public Use
  Company Number: None

PATIENT
  Age: 77 Year
  Sex: Male
  Weight: 90.09 kg

DRUGS (6)
  1. FINASTERIDE [Suspect]
     Active Substance: FINASTERIDE
     Indication: Sexually inappropriate behaviour
     Dosage: FREQUENCY : DAILY;?
     Route: 048
  2. FINASTERIDE [Suspect]
     Active Substance: FINASTERIDE
     Indication: Aggression
  3. AMLODIPINE [Suspect]
     Active Substance: AMLODIPINE BESYLATE
  4. METOPROLOL [Suspect]
     Active Substance: METOPROLOL
  5. OLANZAPINE [Suspect]
     Active Substance: OLANZAPINE
  6. PERCOCET [Suspect]
     Active Substance: ACETAMINOPHEN\OXYCODONE HYDROCHLORIDE

REACTIONS (6)
  - Oedema [None]
  - Oedema peripheral [None]
  - Oedema peripheral [None]
  - Weight increased [None]
  - Oedema peripheral [None]
  - Dysarthria [None]

NARRATIVE: CASE EVENT DATE: 20220907
